FAERS Safety Report 26011624 (Version 2)
Quarter: 2025Q4

REPORT INFORMATION
  Report Type: Spontaneous
  Country: EU (occurrence: EU)
  Receive Date: 20251107
  Receipt Date: 20251117
  Transmission Date: 20260118
  Serious: No
  Sender: TEVA
  Company Number: EU-MINISAL02-1063174

PATIENT
  Age: 15 Year
  Sex: Male
  Weight: 52 kg

DRUGS (1)
  1. ISOTRETINOIN [Suspect]
     Active Substance: ISOTRETINOIN
     Indication: Acne cystic
     Route: 048
     Dates: start: 20250520, end: 20250610

REACTIONS (2)
  - Spondylitis [Recovering/Resolving]
  - Sacroiliitis [Recovering/Resolving]

NARRATIVE: CASE EVENT DATE: 20250525
